FAERS Safety Report 6334479-5 (Version None)
Quarter: 2009Q3

REPORT INFORMATION
  Report Type: 
  Country: None (occurrence: None)
  Receive Date: 20090827
  Receipt Date: 20081008
  Transmission Date: 20100115
  Serious: Yes (Other)
  Sender: FDA-Public Use
  Company Number: ACO_00475_2008

PATIENT
  Sex: Female
  Weight: 127.0072 kg

DRUGS (12)
  1. ZANAFLEX [Suspect]
     Indication: NERVE INJURY
     Dosage: 4 MG BID, ORAL
     Route: 048
     Dates: start: 20080728
  2. LASIX [Concomitant]
  3. IMDUR [Concomitant]
  4. NEURONTIN [Concomitant]
  5. URISPAS [Concomitant]
  6. HUMULIN U [Concomitant]
  7. CYMBALTA [Concomitant]
  8. PREVACID [Concomitant]
  9. ASMANEX TWISTHALER [Concomitant]
  10. DARVOCET-N 100 [Concomitant]
  11. FORADIL [Concomitant]
  12. LISINOPRIL [Concomitant]

REACTIONS (3)
  - BLOOD GLUCOSE INCREASED [None]
  - BLOOD PRESSURE DECREASED [None]
  - MUSCLE TWITCHING [None]
